FAERS Safety Report 4283772-9 (Version None)
Quarter: 2004Q1

REPORT INFORMATION
  Report Type: 
  Country: None (occurrence: None)
  Receive Date: 20040115
  Receipt Date: 20021231
  Transmission Date: 20041129
  Serious: Yes (Other)
  Sender: FDA-Public Use
  Company Number: NSADSS2002039373

PATIENT
  Age: 59 Year
  Sex: Female
  Weight: 51.7101 kg

DRUGS (3)
  1. DOXIL [Suspect]
     Indication: OVARIAN CANCER
     Dosage: 40 MG/M2, INTRAVENOUS DRIP; SEE IMAGE
     Route: 041
     Dates: start: 20020701, end: 20020701
  2. DOXIL [Suspect]
     Indication: OVARIAN CANCER
     Dosage: 40 MG/M2, INTRAVENOUS DRIP; SEE IMAGE
     Route: 041
     Dates: start: 20020801, end: 20020901
  3. DOXIL [Suspect]
     Indication: OVARIAN CANCER
     Dosage: 40 MG/M2, INTRAVENOUS DRIP; SEE IMAGE
     Route: 041
     Dates: start: 20021001, end: 20021101

REACTIONS (3)
  - BURNING SENSATION [None]
  - CONDITION AGGRAVATED [None]
  - RASH PAPULAR [None]
